FAERS Safety Report 14262719 (Version 11)
Quarter: 2024Q3

REPORT INFORMATION
  Report Type: Spontaneous
  Country: US (occurrence: US)
  Receive Date: 20171208
  Receipt Date: 20240926
  Transmission Date: 20241017
  Serious: Yes (Hospitalization, Other)
  Sender: PFIZER
  Company Number: US-PFIZER INC-2017523161

PATIENT
  Age: 60 Year
  Sex: Male
  Weight: 99.79 kg

DRUGS (2)
  1. XELJANZ XR [Suspect]
     Active Substance: TOFACITINIB CITRATE
     Indication: Rheumatoid arthritis
     Dosage: 11 MG, 1X/DAY
     Route: 048
     Dates: start: 20160410
  2. LISINOPRIL [Concomitant]
     Active Substance: LISINOPRIL
     Indication: Blood pressure abnormal
     Dosage: 10 MG, DAILY

REACTIONS (10)
  - Sinusitis [Recovered/Resolved]
  - Musculoskeletal discomfort [Recovered/Resolved]
  - Arthropathy [Recovered/Resolved]
  - Accident [Unknown]
  - Rib fracture [Unknown]
  - Illness [Unknown]
  - Fungal infection [Unknown]
  - Hypoacusis [Unknown]
  - Pain [Not Recovered/Not Resolved]
  - Fungal foot infection [Unknown]

NARRATIVE: CASE EVENT DATE: 20170101
